FAERS Safety Report 4597994-0 (Version None)
Quarter: 2005Q1

REPORT INFORMATION
  Report Type: 
  Country: None (occurrence: None)
  Receive Date: 20050210
  Receipt Date: 20040610
  Transmission Date: 20050727
  Serious: Yes (Hospitalization)
  Sender: FDA-Public Use
  Company Number: 04P-163-0263480-00

PATIENT
  Age: 78 Year
  Sex: Female

DRUGS (8)
  1. TRICOR [Suspect]
     Indication: BLOOD CHOLESTEROL INCREASED
     Dosage: 80 MG, 1 IN 1 D, PER ORAL
     Route: 048
  2. ASPIRIN [Concomitant]
  3. ISOSORBIDE [Concomitant]
  4. DIGOXIN [Concomitant]
  5. ATENOLOL [Concomitant]
  6. LEVOTHYROXINE SODIUM [Concomitant]
  7. COUMADIN [Concomitant]
  8. OMEPRAZOLE [Concomitant]

REACTIONS (3)
  - ANAEMIA [None]
  - CHEST PAIN [None]
  - DIARRHOEA [None]
